FAERS Safety Report 13178871 (Version 14)
Quarter: 2020Q1

REPORT INFORMATION
  Report Type: Spontaneous
  Country: US (occurrence: US)
  Receive Date: 20170202
  Receipt Date: 20200127
  Transmission Date: 20200409
  Serious: Yes (Hospitalization, Other)
  Sender: FDA-Public Use
  Company Number: US-PFIZER INC-2016539415

PATIENT
  Age: 80 Year
  Sex: Female
  Weight: 97 kg

DRUGS (8)
  1. IBRANCE [Suspect]
     Active Substance: PALBOCICLIB
     Dosage: 100 MG, CYCLIC (D1-21 Q 28 DAYS)
     Route: 048
  2. IBRANCE [Suspect]
     Active Substance: PALBOCICLIB
     Dosage: 100 MG, CYCLIC (D1-21 Q 28 DAYS)
     Route: 048
     Dates: start: 20170330
  3. IBRANCE [Suspect]
     Active Substance: PALBOCICLIB
     Dosage: 100 MG, CYCLIC (D1-21 Q 28 DAYS)
     Route: 048
  4. IBRANCE [Suspect]
     Active Substance: PALBOCICLIB
     Indication: BREAST CANCER METASTATIC
     Dosage: 100 MG, CYCLIC (D1-21 Q 28 DAYS)
     Route: 048
     Dates: start: 20161101
  5. IBRANCE [Suspect]
     Active Substance: PALBOCICLIB
     Dosage: 100 MG, CYCLIC (DAYS 1-21 Q28 DAYS)
     Route: 048
  6. IBRANCE [Suspect]
     Active Substance: PALBOCICLIB
     Dosage: 100 MG, CYCLIC (D1-21 Q 28 DAYS)
     Route: 048
  7. IBRANCE [Suspect]
     Active Substance: PALBOCICLIB
     Dosage: 100 MG, CYCLIC (D1-21 Q 28 DAYS)
     Route: 048
  8. IBRANCE [Suspect]
     Active Substance: PALBOCICLIB
     Dosage: 100 MG, CYCLIC (D1-21 Q 28 DAYS)
     Route: 048

REACTIONS (17)
  - Cardiac failure congestive [Unknown]
  - Cerebral disorder [Unknown]
  - Hypoacusis [Unknown]
  - Wrong technique in product usage process [Unknown]
  - Bronchitis [Unknown]
  - Oxygen saturation decreased [Unknown]
  - White blood cell count decreased [Unknown]
  - Influenza [Unknown]
  - Road traffic accident [Unknown]
  - Alopecia [Unknown]
  - Sinusitis [Unknown]
  - Malaise [Unknown]
  - Product dose omission [Unknown]
  - Fall [Unknown]
  - Pneumonia [Unknown]
  - Contusion [Unknown]
  - Asthma [Unknown]

NARRATIVE: CASE EVENT DATE: 20170203
